FAERS Safety Report 5844095-7 (Version None)
Quarter: 2008Q3

REPORT INFORMATION
  Report Type: 
  Country: None (occurrence: None)
  Receive Date: 20080813
  Receipt Date: 20080730
  Transmission Date: 20090109
  Serious: Yes (Hospitalization)
  Sender: FDA-Public Use
  Company Number: DE-GENENTECH-265737

PATIENT
  Sex: Female

DRUGS (2)
  1. AVASTIN [Suspect]
     Indication: BREAST CANCER
     Dosage: 7.5 MG/KG, Q3W
     Route: 065
     Dates: start: 20080612, end: 20080703
  2. PACLITAXEL [Suspect]
     Indication: BREAST CANCER
     Dosage: 90 UNIT, 1/WEEK
     Route: 065
     Dates: start: 20080612, end: 20080710

REACTIONS (2)
  - DERMATITIS EXFOLIATIVE [None]
  - ERYTHEMA [None]
